FAERS Safety Report 8147079-1 (Version None)
Quarter: 2012Q1

REPORT INFORMATION
  Report Type: 
  Country: None (occurrence: None)
  Receive Date: 20120218
  Receipt Date: 20110107
  Transmission Date: 20120608
  Serious: No
  Sender: FDA-Public Use
  Company Number: US-ALLERGAN-1100263US

PATIENT
  Age: 35 Year
  Sex: Female

DRUGS (2)
  1. BOTOX COSMETIC [Suspect]
     Indication: SKIN WRINKLING
     Dosage: 26 UNITS, SINGLE
     Route: 030
     Dates: start: 20110106, end: 20110106
  2. BOTOX COSMETIC [Suspect]
     Dosage: UNK
     Dates: start: 20090101, end: 20090101

REACTIONS (2)
  - HEADACHE [None]
  - VISION BLURRED [None]
